FAERS Safety Report 4317609-6 (Version None)
Quarter: 2004Q1

REPORT INFORMATION
  Report Type: 
  Country: None (occurrence: None)
  Receive Date: 20040315
  Receipt Date: 20040302
  Transmission Date: 20041129
  Serious: Yes (Hospitalization)
  Sender: FDA-Public Use
  Company Number: 200411656US

PATIENT
  Sex: Male
  Weight: 106.4 kg

DRUGS (12)
  1. DOCETAXEL [Suspect]
     Indication: PROSTATE CANCER
     Route: 042
     Dates: start: 20030126, end: 20030401
  2. ESTRAMUSTINE [Suspect]
     Indication: PROSTATE CANCER
     Route: 048
     Dates: start: 20030126, end: 20030401
  3. ZOLADEX [Suspect]
     Indication: PROSTATE CANCER
     Route: 058
     Dates: start: 20030114, end: 20040106
  4. CASODEX [Suspect]
     Indication: PROSTATE CANCER
     Route: 048
     Dates: start: 20030114, end: 20031007
  5. ACCUPRIL [Concomitant]
     Route: 048
  6. ZOCOR [Concomitant]
     Route: 048
  7. LASIX [Concomitant]
     Route: 048
  8. K-DUR 10 [Concomitant]
     Route: 048
  9. FUROSEMIDE [Concomitant]
     Route: 048
  10. KEFLEX [Concomitant]
  11. COUMADIN [Concomitant]
  12. DEXAMETHASONE [Concomitant]
     Dates: start: 20030125, end: 20030401

REACTIONS (7)
  - ANAEMIA [None]
  - GAMMOPATHY [None]
  - GLOMERULONEPHRITIS MEMBRANOUS [None]
  - HYPOALBUMINAEMIA [None]
  - NEPHROTIC SYNDROME [None]
  - PROTEINURIA [None]
  - RED BLOOD CELL SEDIMENTATION RATE INCREASED [None]
